FAERS Safety Report 7874862-X (Version None)
Quarter: 2011Q4

REPORT INFORMATION
  Report Type: 
  Country: None (occurrence: None)
  Receive Date: 20111031
  Receipt Date: 20111021
  Transmission Date: 20120403
  Serious: Yes (Other)
  Sender: FDA-Public Use
  Company Number: JP-JNJFOC-20111010847

PATIENT

DRUGS (3)
  1. INVEGA [Suspect]
     Route: 048
  2. INVEGA [Suspect]
     Route: 048
  3. INVEGA [Suspect]
     Indication: PRODUCT USED FOR UNKNOWN INDICATION
     Route: 048

REACTIONS (3)
  - DELUSION [None]
  - SOLILOQUY [None]
  - RESTLESSNESS [None]
